FAERS Safety Report 4963146-5 (Version None)
Quarter: 2006Q2

REPORT INFORMATION
  Report Type: 
  Country: None (occurrence: None)
  Receive Date: 20060405
  Receipt Date: 20050516
  Transmission Date: 20061013
  Serious: Yes (Hospitalization)
  Sender: FDA-Public Use
  Company Number: US-MERCK-0505USA01958

PATIENT
  Age: 66 Year
  Sex: Female
  Weight: 57 kg

DRUGS (4)
  1. VIOXX [Suspect]
     Indication: ARTHRITIS
     Route: 048
     Dates: start: 20000101, end: 20030101
  2. ALEVE [Concomitant]
     Route: 065
  3. TYLENOL (CAPLET) [Concomitant]
     Route: 065
  4. ASPIRIN [Concomitant]
     Route: 065

REACTIONS (53)
  - ACUTE MYOCARDIAL INFARCTION [None]
  - ANAEMIA [None]
  - ANGIOPATHY [None]
  - AORTIC VALVE SCLEROSIS [None]
  - ASTHENIA [None]
  - BARRETT'S OESOPHAGUS [None]
  - BLOOD POTASSIUM DECREASED [None]
  - BLOOD SODIUM INCREASED [None]
  - BRONCHIAL CARCINOMA [None]
  - BUNDLE BRANCH BLOCK [None]
  - CANDIDIASIS [None]
  - CAROTID ARTERY DISEASE [None]
  - CEREBELLAR INFARCTION [None]
  - CEREBRAL ARTERIOSCLEROSIS [None]
  - CEREBRAL HAEMATOMA [None]
  - CEREBRAL INFARCTION [None]
  - CEREBRAL ISCHAEMIA [None]
  - CEREBROVASCULAR ACCIDENT [None]
  - CHRONIC SINUSITIS [None]
  - COLONIC POLYP [None]
  - CORONARY ARTERY DISEASE [None]
  - CORONARY ARTERY OCCLUSION [None]
  - DILATATION VENTRICULAR [None]
  - DRUG WITHDRAWAL SYNDROME [None]
  - DYSPHAGIA [None]
  - ELECTROCARDIOGRAM T WAVE ABNORMAL [None]
  - ENTEROCOCCAL INFECTION [None]
  - FALL [None]
  - FIBULA FRACTURE [None]
  - FUNGAEMIA [None]
  - GASTRIC ULCER [None]
  - HUMERUS FRACTURE [None]
  - HYDROPNEUMOTHORAX [None]
  - HYPONATRAEMIA [None]
  - HYPOTHYROIDISM [None]
  - LOSS OF CONSCIOUSNESS [None]
  - MALNUTRITION [None]
  - MIGRAINE [None]
  - MITRAL VALVE CALCIFICATION [None]
  - MITRAL VALVE INCOMPETENCE [None]
  - MYOCARDIAL INFARCTION [None]
  - NORMOCHROMIC NORMOCYTIC ANAEMIA [None]
  - OESOPHAGEAL STENOSIS [None]
  - OESOPHAGITIS [None]
  - ORAL CANDIDIASIS [None]
  - PLATELET COUNT INCREASED [None]
  - PNEUMONIA [None]
  - PNEUMONIA ASPIRATION [None]
  - RENAL FAILURE [None]
  - THROMBOCYTOPENIA [None]
  - ULNA FRACTURE [None]
  - UPPER LIMB FRACTURE [None]
  - URINARY TRACT INFECTION [None]
